FAERS Safety Report 5528038-1 (Version None)
Quarter: 2007Q4

REPORT INFORMATION
  Report Type: 
  Country: None (occurrence: None)
  Receive Date: 20071128
  Receipt Date: 20071121
  Transmission Date: 20080405
  Serious: Yes (Hospitalization, Disabling, Other)
  Sender: FDA-Public Use
  Company Number: US-JNJFOC-20071108360

PATIENT
  Sex: Female
  Weight: 68.18 kg

DRUGS (22)
  1. LEVAQUIN [Suspect]
     Indication: SINUSITIS
     Route: 048
  2. KETEK [Suspect]
     Indication: SINUSITIS
     Route: 048
  3. LIPITOR [Concomitant]
     Route: 065
  4. LASIX [Concomitant]
     Route: 065
  5. GUAIFENESIN [Concomitant]
     Route: 065
  6. HYDROCODONE BITARTRATE [Concomitant]
     Route: 065
  7. ALBUTEROL [Concomitant]
     Route: 065
  8. WELLBUTRIN [Concomitant]
     Route: 065
  9. PAXIL [Concomitant]
     Route: 065
  10. K-DUR 10 [Concomitant]
     Route: 065
  11. LOPID [Concomitant]
     Route: 065
  12. ACCOLATE [Concomitant]
     Route: 065
  13. DESLORATADINE [Concomitant]
     Route: 065
  14. ADVAIR DISKUS 100/50 [Concomitant]
     Route: 065
  15. NIFEDINE [Concomitant]
     Route: 065
  16. PRILOSEC [Concomitant]
     Route: 065
  17. LOTENSIN [Concomitant]
     Route: 065
  18. ASPIRIN [Concomitant]
     Route: 065
  19. FOLIC ACID [Concomitant]
     Route: 065
  20. PREDNISOLONE [Concomitant]
     Route: 065
  21. CEFZIL [Concomitant]
     Route: 065
  22. PRESSORS [Concomitant]
     Route: 065

REACTIONS (13)
  - ATRIAL THROMBOSIS [None]
  - BLOOD CREATININE INCREASED [None]
  - BLOOD UREA INCREASED [None]
  - CLOSTRIDIUM DIFFICILE COLITIS [None]
  - DEPRESSION [None]
  - GASTROINTESTINAL NECROSIS [None]
  - GASTROOESOPHAGEAL REFLUX DISEASE [None]
  - IMPAIRED HEALING [None]
  - LIVER FUNCTION TEST ABNORMAL [None]
  - NECROSIS [None]
  - PLATELET COUNT INCREASED [None]
  - SEPSIS [None]
  - VISUAL DISTURBANCE [None]
